FAERS Safety Report 12152833 (Version 1)
Quarter: 2016Q1

REPORT INFORMATION
  Report Type: Report from Study
  Country: DE (occurrence: DE)
  Receive Date: 20160304
  Receipt Date: 20160304
  Transmission Date: 20160526
  Serious: Yes (Hospitalization)
  Sender: FDA-Public Use
  Company Number: US-ASTRAZENECA-2016SE20519

PATIENT
  Age: 22 Month
  Sex: Female
  Weight: 8.5 kg

DRUGS (3)
  1. SYNAGIS [Suspect]
     Active Substance: PALIVIZUMAB
     Indication: BRONCHOPULMONARY DYSPLASIA
     Route: 030
     Dates: start: 201510
  2. VIANI [Concomitant]
     Active Substance: FLUTICASONE PROPIONATE\SALMETEROL XINAFOATE
     Dosage: DAILY
     Route: 055
     Dates: start: 201407
  3. SYNAGIS [Suspect]
     Active Substance: PALIVIZUMAB
     Indication: ANTIVIRAL PROPHYLAXIS
     Route: 030
     Dates: start: 201510

REACTIONS (4)
  - Upper respiratory tract infection [Recovering/Resolving]
  - Fluid intake reduced [Recovering/Resolving]
  - Respiratory syncytial virus bronchiolitis [Recovering/Resolving]
  - Adenovirus infection [Recovering/Resolving]

NARRATIVE: CASE EVENT DATE: 201601
